FAERS Safety Report 4349812-3 (Version None)
Quarter: 2004Q2

REPORT INFORMATION
  Report Type: 
  Country: None (occurrence: None)
  Receive Date: 20040426
  Receipt Date: 20040419
  Transmission Date: 20050107
  Serious: Yes (Death, Other)
  Sender: FDA-Public Use
  Company Number: KII-1999-0007545

PATIENT
  Sex: Male

DRUGS (1)
  1. OXYCONTIN [Suspect]
     Dosage: 120 MG, DAILY; 140 MG DAILY

REACTIONS (3)
  - COMPLETED SUICIDE [None]
  - DEPRESSION [None]
  - DRUG ABUSER [None]
